FAERS Safety Report 19496836 (Version 4)
Quarter: 2021Q3

REPORT INFORMATION
  Report Type: Report from Study
  Country: US (occurrence: US)
  Receive Date: 20210706
  Receipt Date: 20210907
  Transmission Date: 20211014
  Serious: Yes (Hospitalization, Other)
  Sender: FDA-Public Use
  Company Number: US-GLAXOSMITHKLINE-US2021105221

PATIENT
  Age: 65 Year
  Sex: Male

DRUGS (1)
  1. BELANTAMAB MAFODOTIN. [Suspect]
     Active Substance: BELANTAMAB MAFODOTIN
     Indication: PLASMA CELL MYELOMA
     Dosage: UNK
     Dates: start: 20210514

REACTIONS (11)
  - Infection [Unknown]
  - Visual acuity reduced [Unknown]
  - Rash macular [Unknown]
  - Ear discomfort [Unknown]
  - Keratopathy [Unknown]
  - Rash [Unknown]
  - Ulcerative keratitis [Not Recovered/Not Resolved]
  - Fatigue [Unknown]
  - Pyrexia [Unknown]
  - Auditory disorder [Unknown]
  - Dizziness [Unknown]

NARRATIVE: CASE EVENT DATE: 202105
